FAERS Safety Report 25487847 (Version 1)
Quarter: 2025Q2

REPORT INFORMATION
  Report Type: Spontaneous
  Country: NL (occurrence: NL)
  Receive Date: 20250627
  Receipt Date: 20250627
  Transmission Date: 20250717
  Serious: Yes (Hospitalization, Other)
  Sender: ABBVIE
  Company Number: None

PATIENT
  Weight: 2 kg

DRUGS (1)
  1. CITALOPRAM [Suspect]
     Active Substance: CITALOPRAM
     Indication: Attention deficit hyperactivity disorder
     Dosage: 1 X PER DAY 1 PIECE
     Route: 064

REACTIONS (2)
  - Neonatal respiratory distress [Recovered/Resolved]
  - Foetal exposure during pregnancy [Unknown]
